FAERS Safety Report 18209827 (Version 1)
Quarter: 2020Q3

REPORT INFORMATION
  Report Type: Spontaneous
  Country: DE (occurrence: DE)
  Receive Date: 20200828
  Receipt Date: 20200828
  Transmission Date: 20201103
  Serious: Yes (Hospitalization)
  Sender: FDA-Public Use
  Company Number: DE-ANIPHARMA-2020-DE-000189

PATIENT
  Age: 90 Year
  Sex: Male

DRUGS (9)
  1. NALOXONE+TILIDINE [Suspect]
     Active Substance: NALOXONE HYDROCHLORIDE\TILIDINE HYDROCHLORIDE
     Dosage: TWO TIMES A DAY
     Route: 048
  2. ATORVASTATIN [Concomitant]
     Active Substance: ATORVASTATIN
     Dosage: 40 MG QD
     Route: 048
  3. PANTOPRAZOL [Concomitant]
     Active Substance: PANTOPRAZOLE SODIUM
     Dosage: 40 MG QD
     Route: 048
  4. RISPERIDONE. [Suspect]
     Active Substance: RISPERIDONE
     Dosage: 1 MG QD
     Route: 048
  5. PIPAMPERONE [Suspect]
     Active Substance: PIPAMPERONE
     Dosage: 40 MG QD
     Route: 048
  6. TORASEMIDE [Suspect]
     Active Substance: TORSEMIDE
     Dosage: 50 MG QD
     Route: 048
  7. FINASTERIDE. [Suspect]
     Active Substance: FINASTERIDE
     Dosage: 5 MG QD
     Route: 048
  8. CANDESARTAN CILEXETIL. [Suspect]
     Active Substance: CANDESARTAN CILEXETIL
     Indication: PRODUCT USED FOR UNKNOWN INDICATION
     Dosage: 8 MG QD
     Route: 048
  9. CYANOCOBALAMIN. [Concomitant]
     Active Substance: CYANOCOBALAMIN
     Dosage: 100 UG QD
     Route: 048

REACTIONS (6)
  - Fall [Unknown]
  - Pain in extremity [None]
  - Product monitoring error [Unknown]
  - Fracture [Unknown]
  - Labelled drug-drug interaction medication error [Unknown]
  - Pain [Unknown]
